FAERS Safety Report 20919406 (Version 1)
Quarter: 2022Q2

REPORT INFORMATION
  Report Type: Spontaneous
  Country: US (occurrence: None)
  Receive Date: 20220603
  Receipt Date: 20220603
  Transmission Date: 20220721
  Serious: Yes (Other)
  Sender: FDA-Public Use
  Company Number: None

PATIENT
  Sex: Female

DRUGS (5)
  1. MOXALACTAM [Suspect]
     Active Substance: MOXALACTAM
     Dosage: FREQUENCY : DAILY;?
  2. SERTRALINE [Suspect]
     Active Substance: SERTRALINE HYDROCHLORIDE
     Dosage: FREQUENCY : DAILY;?
  3. GABAPENTIN [Suspect]
     Active Substance: GABAPENTIN
  4. BACLOFEN [Suspect]
     Active Substance: BACLOFEN
  5. ADDERALL [Suspect]
     Active Substance: AMPHETAMINE ASPARTATE\AMPHETAMINE SULFATE\DEXTROAMPHETAMINE SACCHARATE\DEXTROAMPHETAMINE SULFATE

REACTIONS (10)
  - Vision blurred [None]
  - Headache [None]
  - Muscle spasms [None]
  - Balance disorder [None]
  - Fatigue [None]
  - Hypoaesthesia [None]
  - Paraesthesia [None]
  - Depression [None]
  - Anxiety [None]
  - Attention deficit hyperactivity disorder [None]
